FAERS Safety Report 24981810 (Version 1)
Quarter: 2025Q1

REPORT INFORMATION
  Report Type: Spontaneous
  Country: US (occurrence: None)
  Receive Date: 20250218
  Receipt Date: 20250218
  Transmission Date: 20250408
  Serious: Yes (Hospitalization, Congenital Anomaly, Other)
  Sender: FDA-CTU
  Company Number: None

PATIENT
  Age: 0 Year
  Sex: Female
  Weight: 4.17 kg

DRUGS (3)
  1. PAROXETINE [Suspect]
     Active Substance: PAROXETINE
  2. BUPROPION [Suspect]
     Active Substance: BUPROPION
  3. ONDANSETRON [Suspect]
     Active Substance: ONDANSETRON

REACTIONS (26)
  - Caesarean section [None]
  - Tachycardia foetal [None]
  - Respiratory distress [None]
  - Neonatal respiratory distress syndrome [None]
  - Pulse pressure increased [None]
  - Neonatal pneumonia [None]
  - Selective eating disorder [None]
  - Choking [None]
  - Heart disease congenital [None]
  - Ventricular septal defect [None]
  - Patent ductus arteriosus [None]
  - Left-to-right cardiac shunt [None]
  - Right ventricular hypertrophy [None]
  - Ascites [None]
  - Polycystic liver disease [None]
  - Jaundice neonatal [None]
  - Congenital anomaly [None]
  - Polydactyly [None]
  - Syndactyly [None]
  - Trisomy 9 [None]
  - Developmental delay [None]
  - Deafness [None]
  - Congenital foot malformation [None]
  - Congenital genital malformation [None]
  - Heart disease congenital [None]
  - Congenital eye disorder [None]

NARRATIVE: CASE EVENT DATE: 20210510
